FAERS Safety Report 20426826 (Version 1)
Quarter: 2022Q1

REPORT INFORMATION
  Report Type: Report from Study
  Country: US (occurrence: US)
  Receive Date: 20220204
  Receipt Date: 20220204
  Transmission Date: 20220423
  Serious: No
  Sender: FDA-Public Use
  Company Number: US-EXELIXIS-CABO-21046130

PATIENT
  Sex: Male
  Weight: 88.685 kg

DRUGS (1)
  1. CABOMETYX [Suspect]
     Active Substance: CABOZANTINIB S-MALATE
     Indication: Renal cancer
     Dosage: 40 MG, QD
     Route: 048
     Dates: start: 20210916

REACTIONS (3)
  - Feeding disorder [Not Recovered/Not Resolved]
  - Taste disorder [Not Recovered/Not Resolved]
  - Dysphonia [Not Recovered/Not Resolved]
